FAERS Safety Report 16004266 (Version 1)
Quarter: 2019Q1

REPORT INFORMATION
  Report Type: Spontaneous
  Country: US (occurrence: US)
  Receive Date: 20190225
  Receipt Date: 20190225
  Transmission Date: 20190418
  Serious: Yes (Other)
  Sender: FDA-Public Use
  Company Number: None

PATIENT
  Age: 69 Year
  Sex: Female
  Weight: 60.75 kg

DRUGS (1)
  1. PROLIA [Suspect]
     Active Substance: DENOSUMAB
     Indication: OSTEOPOROSIS
     Dosage: ?          OTHER FREQUENCY:Q 6 MONTHS;OTHER ROUTE:INJECTED SQ?
     Dates: start: 20181231

REACTIONS (3)
  - Abdominal discomfort [None]
  - Gastrooesophageal reflux disease [None]
  - Constipation [None]

NARRATIVE: CASE EVENT DATE: 20181231
